FAERS Safety Report 17140997 (Version 2)
Quarter: 2019Q4

REPORT INFORMATION
  Report Type: Spontaneous
  Country: US (occurrence: US)
  Receive Date: 20191211
  Receipt Date: 20191217
  Transmission Date: 20200122
  Serious: No
  Sender: FDA-Public Use
  Company Number: US-PFIZER INC-2019532893

PATIENT
  Sex: Female

DRUGS (1)
  1. BICILLIN L-A [Suspect]
     Active Substance: PENICILLIN G BENZATHINE
     Indication: LYME DISEASE
     Dosage: UNK

REACTIONS (4)
  - Ear disorder [Unknown]
  - Headache [Unknown]
  - Off label use [Unknown]
  - Drug effective for unapproved indication [Unknown]
